FAERS Safety Report 4685895-9 (Version None)
Quarter: 2005Q2

REPORT INFORMATION
  Report Type: 
  Country: None (occurrence: None)
  Receive Date: 20050607
  Receipt Date: 20050607
  Transmission Date: 20051028
  Serious: No
  Sender: FDA-Public Use
  Company Number: None

PATIENT
  Age: 77 Year
  Sex: Male

DRUGS (5)
  1. SKELAXIN [Suspect]
     Dosage: 1/2 TAB 3 TIMES A DAY
     Dates: start: 20050528, end: 20050601
  2. PRAVACHOL [Concomitant]
  3. AMITRIPTYLINE HCL [Concomitant]
  4. GLUCOTROL XL [Concomitant]
  5. VIAGRA [Concomitant]

REACTIONS (1)
  - BACK PAIN [None]
